FAERS Safety Report 24641316 (Version 1)
Quarter: 2024Q4

REPORT INFORMATION
  Report Type: Spontaneous
  Country: GB (occurrence: GB)
  Receive Date: 20241120
  Receipt Date: 20241120
  Transmission Date: 20250115
  Serious: Yes (Hospitalization, Other)
  Sender: CHEPLAPHARM
  Company Number: None

PATIENT
  Age: 35 Year
  Sex: Female

DRUGS (16)
  1. OLANZAPINE [Suspect]
     Active Substance: OLANZAPINE
     Dosage: ONE TO BE TAKEN AT NIGHT?DAILY DOSE: 10 MILLIGRAM
  2. CARVEDILOL [Concomitant]
     Active Substance: CARVEDILOL
  3. Coal tar extract 2% shampoo (T Gel) [Concomitant]
  4. THIAMINE [Concomitant]
     Active Substance: THIAMINE
  5. LANSOPRAZOLE [Concomitant]
     Active Substance: LANSOPRAZOLE
  6. ACETAMINOPHEN [Concomitant]
     Active Substance: ACETAMINOPHEN
  7. MIRTAZAPINE [Concomitant]
     Active Substance: MIRTAZAPINE
  8. IBUPROFEN [Concomitant]
     Active Substance: IBUPROFEN
  9. CHOLESTYRAMINE [Concomitant]
     Active Substance: CHOLESTYRAMINE
  10. FERROUS FUMARATE [Concomitant]
     Active Substance: FERROUS FUMARATE
  11. LACTULOSE [Concomitant]
     Active Substance: LACTULOSE
  12. SERTRALINE [Concomitant]
     Active Substance: SERTRALINE HYDROCHLORIDE
  13. ACAMPROSATE [Concomitant]
     Active Substance: ACAMPROSATE
  14. LANOLIN\LIGHT MINERAL OIL\PARAFFIN [Concomitant]
     Active Substance: LANOLIN\LIGHT MINERAL OIL\PARAFFIN
  15. SPIRONOLACTONE [Concomitant]
     Active Substance: SPIRONOLACTONE
  16. CHOLECALCIFEROL [Concomitant]
     Active Substance: CHOLECALCIFEROL

REACTIONS (1)
  - Electrocardiogram QT prolonged [Unknown]
